FAERS Safety Report 6692920-2 (Version None)
Quarter: 2010Q2

REPORT INFORMATION
  Report Type: 
  Country: None (occurrence: None)
  Receive Date: 20100419
  Receipt Date: 20100402
  Transmission Date: 20101027
  Serious: Yes (Hospitalization)
  Sender: FDA-Public Use
  Company Number: 7000105

PATIENT
  Age: 14 Year
  Sex: Female

DRUGS (6)
  1. SAIZEN [Suspect]
     Dates: start: 20041116, end: 20100204
  2. BUSULFEX [Suspect]
     Dosage: INTRAVENOUS (NOT OTHERWISE SPECIFIED)
     Route: 042
     Dates: start: 19970101, end: 19970101
  3. CYCLOPHOSPHAMIDE [Suspect]
     Dosage: INTRAVENOUS (NOT OTHERWISE SPECIFIED)
     Route: 042
     Dates: start: 19970101, end: 19970101
  4. CYCLOPHOSPHAMIDE [Suspect]
     Dosage: INTRAVENOUS (NOT OTHERWISE SPECIFIED)
     Route: 042
     Dates: start: 19980101, end: 19980101
  5. THIOTEPA [Suspect]
     Dosage: INTRAVENOUS (NOT OTHERWISE SPECIFIED)
     Route: 042
     Dates: start: 19981101, end: 19981101
  6. ALKERAN [Suspect]
     Dosage: INTRAVENOUS (NOT OTHERWISE SPECIFIED)
     Route: 042
     Dates: start: 19981101, end: 19981101

REACTIONS (3)
  - BONE SARCOMA [None]
  - METASTASES TO SOFT TISSUE [None]
  - TUMOUR NECROSIS [None]
